FAERS Safety Report 22058350 (Version 1)
Quarter: 2023Q1

REPORT INFORMATION
  Report Type: Spontaneous
  Country: CN (occurrence: CN)
  Receive Date: 20230303
  Receipt Date: 20230303
  Transmission Date: 20230418
  Serious: Yes (Other)
  Sender: FDA-Public Use
  Company Number: CN-GLAXOSMITHKLINE-CN2023APC031385

PATIENT

DRUGS (3)
  1. SERETIDE [Suspect]
     Active Substance: FLUTICASONE PROPIONATE\SALMETEROL XINAFOATE
     Indication: Asthma
     Dosage: UNK
     Dates: end: 20230223
  2. TRELEGY ELLIPTA [Suspect]
     Active Substance: FLUTICASONE FUROATE\UMECLIDINIUM BROMIDE\VILANTEROL TRIFENATATE
     Indication: Emphysema
     Dosage: 1 INHALATION/QD
     Dates: start: 20230224
  3. YOUJIALE TABLETS (LEVOTHYROXINE SODIUM) [Concomitant]
     Indication: Hypothyroidism
     Dosage: UNK
     Dates: start: 2017

REACTIONS (7)
  - Hypothyroidism [Not Recovered/Not Resolved]
  - COVID-19 [Recovered/Resolved]
  - Pulmonary function test decreased [Unknown]
  - Emphysema [Not Recovered/Not Resolved]
  - Treatment noncompliance [Recovered/Resolved]
  - Underdose [Unknown]
  - Off label use [Unknown]

NARRATIVE: CASE EVENT DATE: 20221211
